FAERS Safety Report 9444188 (Version 3)
Quarter: 2014Q3

REPORT INFORMATION
  Report Type: Report from Study
  Country: US (occurrence: US)
  Receive Date: 20130807
  Receipt Date: 20140717
  Transmission Date: 20150326
  Serious: Yes (Hospitalization)
  Sender: FDA-Public Use
  Company Number: US-JNJFOC-20130716942

PATIENT
  Age: 24 Year
  Sex: Female
  Weight: 134.5 kg

DRUGS (6)
  1. SERTRALINE [Suspect]
     Active Substance: SERTRALINE HYDROCHLORIDE
     Indication: SELF-INJURIOUS IDEATION
     Route: 065
  2. ACETAMINOPHEN. [Suspect]
     Active Substance: ACETAMINOPHEN
     Indication: SELF-INJURIOUS IDEATION
     Route: 065
  3. ACETAMINOPHEN. [Suspect]
     Active Substance: ACETAMINOPHEN
     Route: 065
  4. PHENTERMINE [Suspect]
     Active Substance: PHENTERMINE
     Indication: SELF-INJURIOUS IDEATION
     Route: 065
  5. GEODON [Suspect]
     Active Substance: ZIPRASIDONE HYDROCHLORIDE\ZIPRASIDONE MESYLATE
     Indication: SELF-INJURIOUS IDEATION
     Route: 065
  6. ETHANOL [Suspect]
     Active Substance: ALCOHOL
     Indication: SELF-INJURIOUS IDEATION
     Route: 065

REACTIONS (1)
  - Vomiting [Recovered/Resolved]

NARRATIVE: CASE EVENT DATE: 20130725
